FAERS Safety Report 16491651 (Version 1)
Quarter: 2019Q2

REPORT INFORMATION
  Report Type: Spontaneous
  Country: CH (occurrence: CH)
  Receive Date: 20190628
  Receipt Date: 20190628
  Transmission Date: 20190711
  Serious: Yes (Other)
  Sender: FDA-Public Use
  Company Number: CH-ROCHE-2344628

PATIENT
  Sex: Female

DRUGS (6)
  1. IRINOTECAN [Concomitant]
     Active Substance: IRINOTECAN
     Indication: MEDULLOBLASTOMA
     Route: 065
     Dates: start: 201808
  2. IRINOTECAN [Concomitant]
     Active Substance: IRINOTECAN
     Indication: OFF LABEL USE
  3. AVASTIN [Suspect]
     Active Substance: BEVACIZUMAB
     Indication: MEDULLOBLASTOMA
     Route: 042
     Dates: start: 201808
  4. TEMODAL [Concomitant]
     Active Substance: TEMOZOLOMIDE
     Indication: OFF LABEL USE
  5. AVASTIN [Suspect]
     Active Substance: BEVACIZUMAB
     Indication: OFF LABEL USE
  6. TEMODAL [Concomitant]
     Active Substance: TEMOZOLOMIDE
     Indication: MEDULLOBLASTOMA
     Route: 065
     Dates: start: 201808

REACTIONS (4)
  - Disease progression [Unknown]
  - Haematotoxicity [Unknown]
  - Off label use [Unknown]
  - Intentional product use issue [Unknown]
